FAERS Safety Report 5575316-6 (Version None)
Quarter: 2007Q4

REPORT INFORMATION
  Report Type: 
  Country: None (occurrence: None)
  Receive Date: 20071227
  Receipt Date: 20071218
  Transmission Date: 20080405
  Serious: Yes (Other)
  Sender: FDA-Public Use
  Company Number: US-PFIZER INC-2007065657

PATIENT
  Sex: Male

DRUGS (1)
  1. BEXTRA [Suspect]
     Indication: NECK PAIN
     Dosage: DAILY DOSE:20MG
     Route: 048
     Dates: start: 20030714, end: 20041217

REACTIONS (1)
  - STEVENS-JOHNSON SYNDROME [None]
